FAERS Safety Report 6394328-6 (Version None)
Quarter: 2009Q4

REPORT INFORMATION
  Report Type: 
  Country: None (occurrence: None)
  Receive Date: 20091006
  Receipt Date: 20090928
  Transmission Date: 20100525
  Serious: Yes (Hospitalization)
  Sender: FDA-Public Use
  Company Number: 2009SP025031

PATIENT
  Age: 60 Year
  Sex: Male

DRUGS (7)
  1. PEG-INTRON [Suspect]
     Indication: HEPATITIS C
     Dosage: 120 MG; QW; SC, 30 MCG; QW; SC
     Route: 058
     Dates: start: 20090203, end: 20090519
  2. PEG-INTRON [Suspect]
     Indication: HEPATITIS C
     Dosage: 120 MG; QW; SC, 30 MCG; QW; SC
     Route: 058
     Dates: start: 20090526
  3. RIBAVIRIN [Suspect]
     Indication: HEPATITIS C
     Dosage: 1000 MG; QD; PO
     Route: 048
     Dates: start: 20090203
  4. BLINDED ELTROMBOPAG (ELTROMBOPAG) [Suspect]
     Indication: THROMBOCYTOPENIA
     Dosage: ; QD; PO, 100 MG; QD; PO
     Route: 048
     Dates: start: 20090204, end: 20090303
  5. BLINDED ELTROMBOPAG (ELTROMBOPAG) [Suspect]
     Indication: THROMBOCYTOPENIA
     Dosage: ; QD; PO, 100 MG; QD; PO
     Route: 048
     Dates: start: 20090304
  6. ELTROMBOPAG (ELTROMBOPAG) [Suspect]
     Indication: THROMBOCYTOPENIA
     Dosage: 25 MG; QD; PO, 50 MG; QD; PO
     Route: 048
     Dates: start: 20081226, end: 20090108
  7. ELTROMBOPAG (ELTROMBOPAG) [Suspect]
     Indication: THROMBOCYTOPENIA
     Dosage: 25 MG; QD; PO, 50 MG; QD; PO
     Route: 048
     Dates: start: 20090109, end: 20090203

REACTIONS (5)
  - BLOOD CULTURE POSITIVE [None]
  - CELLULITIS [None]
  - PANCYTOPENIA [None]
  - PHLEBITIS [None]
  - STAPHYLOCOCCAL INFECTION [None]
